FAERS Safety Report 23557022 (Version 1)
Quarter: 2024Q1

REPORT INFORMATION
  Report Type: Spontaneous
  Country: US (occurrence: US)
  Receive Date: 20240223
  Receipt Date: 20240223
  Transmission Date: 20240410
  Serious: No
  Sender: FDA-Public Use
  Company Number: US-AZURITY PHARMACEUTICALS, INC.-US-2023ARB003070

PATIENT
  Age: 48 Year
  Sex: Male

DRUGS (3)
  1. FIRVANQ [Suspect]
     Active Substance: VANCOMYCIN HYDROCHLORIDE
     Indication: Clostridium difficile infection
     Dosage: 2.5 ML, Q6H
     Route: 048
     Dates: start: 20230314, end: 20230324
  2. ORPHENADRINE [Concomitant]
     Active Substance: ORPHENADRINE
     Indication: Product used for unknown indication
     Dosage: UNK
  3. IRON [Concomitant]
     Active Substance: IRON
     Indication: Product used for unknown indication
     Dosage: UNK

REACTIONS (3)
  - Poor quality product administered [Unknown]
  - Product dispensing error [Unknown]
  - Liquid product physical issue [Unknown]

NARRATIVE: CASE EVENT DATE: 20230301
